FAERS Safety Report 12892735 (Version 1)
Quarter: 2016Q4

REPORT INFORMATION
  Report Type: Report from Study
  Country: NL (occurrence: NL)
  Receive Date: 20161028
  Receipt Date: 20161028
  Transmission Date: 20170207
  Serious: Yes (Death, Other)
  Sender: FDA-Public Use
  Company Number: NL-AMGEN-NLDSL2016149583

PATIENT
  Age: 87 Year
  Sex: Female

DRUGS (1)
  1. ARANESP [Suspect]
     Active Substance: DARBEPOETIN ALFA
     Indication: NEPHROGENIC ANAEMIA
     Dosage: 20 MUG/0.5 ML, Q2WK
     Route: 058

REACTIONS (2)
  - Intentional product misuse [Unknown]
  - Death [Fatal]

NARRATIVE: CASE EVENT DATE: 20151112
